FAERS Safety Report 11317494 (Version 3)
Quarter: 2015Q3

REPORT INFORMATION
  Report Type: Spontaneous
  Country: US (occurrence: US)
  Receive Date: 20150728
  Receipt Date: 20150804
  Transmission Date: 20151125
  Serious: Yes (Other)
  Sender: FDA-Public Use
  Company Number: US-AMGEN-USASL2015073923

PATIENT
  Age: 56 Year
  Sex: Female

DRUGS (1)
  1. ENBREL [Suspect]
     Active Substance: ETANERCEPT
     Indication: RHEUMATOID ARTHRITIS
     Dosage: 50 MG, UNK
     Route: 065

REACTIONS (14)
  - Tinnitus [Unknown]
  - Vulvovaginal dryness [Unknown]
  - Micturition urgency [Unknown]
  - Increased tendency to bruise [Unknown]
  - Peripheral swelling [Unknown]
  - Ear discomfort [Unknown]
  - Breast tenderness [Unknown]
  - Pollakiuria [Unknown]
  - Rheumatoid arthritis [Unknown]
  - Stress [Unknown]
  - Depression [Unknown]
  - Nocturia [Unknown]
  - Vaginal infection [Unknown]
  - Fatigue [Unknown]
